FAERS Safety Report 12244847 (Version 1)
Quarter: 2016Q2

REPORT INFORMATION
  Report Type: Spontaneous
  Country: None (occurrence: None)
  Receive Date: 20160406
  Receipt Date: 20160406
  Transmission Date: 20160815
  Serious: No
  Sender: FDA-Public Use
  Company Number: None

PATIENT
  Age: 44 Year
  Sex: Female

DRUGS (14)
  1. VENLAFAXINE [Concomitant]
     Active Substance: VENLAFAXINE HYDROCHLORIDE
  2. OMEPRAZOLE. [Concomitant]
     Active Substance: OMEPRAZOLE
  3. LORAZEPAM. [Concomitant]
     Active Substance: LORAZEPAM
  4. IBRANCE [Suspect]
     Active Substance: PALBOCICLIB
     Indication: NEOPLASM MALIGNANT
     Dosage: 125MG DAILY FOR 21 DA ORAL
     Route: 048
     Dates: start: 201603
  5. FLAZSEED OIL [Concomitant]
  6. POTASSIUM [Concomitant]
     Active Substance: POTASSIUM
  7. FISH OIL [Concomitant]
     Active Substance: FISH OIL
  8. CALCIUM [Concomitant]
     Active Substance: CALCIUM
  9. IBUPROFEN. [Concomitant]
     Active Substance: IBUPROFEN
  10. MELATONIN [Concomitant]
     Active Substance: MELATONIN
  11. COLACE [Concomitant]
     Active Substance: DOCUSATE SODIUM
  12. ZOFRAN [Concomitant]
     Active Substance: ONDANSETRON HYDROCHLORIDE
  13. LUNESTA [Concomitant]
     Active Substance: ESZOPICLONE
  14. VITAMIN D3 [Concomitant]
     Active Substance: CHOLECALCIFEROL

REACTIONS (2)
  - Nausea [None]
  - Alopecia [None]

NARRATIVE: CASE EVENT DATE: 20160404
